FAERS Safety Report 16962296 (Version 3)
Quarter: 2019Q4

REPORT INFORMATION
  Report Type: Spontaneous
  Country: JP (occurrence: JP)
  Receive Date: 20191025
  Receipt Date: 20191220
  Transmission Date: 20200122
  Serious: Yes (Hospitalization, Other)
  Sender: FDA-Public Use
  Company Number: JP-CELGENEUS-JPN-20191008240

PATIENT
  Age: 4 Decade
  Sex: Male

DRUGS (2)
  1. OTEZLA [Suspect]
     Active Substance: APREMILAST
     Indication: PSORIATIC ARTHROPATHY
     Dosage: UNKNOWN
     Route: 048
  2. OTEZLA [Suspect]
     Active Substance: APREMILAST
     Indication: PSORIASIS
     Dosage: UPWARD TITRATION
     Route: 048
     Dates: start: 201812

REACTIONS (6)
  - Pain [Recovering/Resolving]
  - Neoplasm malignant [Recovered/Resolved]
  - Bladder cancer [Recovered/Resolved]
  - Unevaluable event [Unknown]
  - Psychotic disorder [Recovering/Resolving]
  - Psoriasis [Recovering/Resolving]
